FAERS Safety Report 7310098-9 (Version None)
Quarter: 2011Q1

REPORT INFORMATION
  Report Type: 
  Country: None (occurrence: None)
  Receive Date: 20110224
  Receipt Date: 20110214
  Transmission Date: 20110831
  Serious: Yes (Hospitalization)
  Sender: FDA-Public Use
  Company Number: IE-BAXTER-2011BH001235

PATIENT
  Age: 53 Year
  Sex: Male

DRUGS (19)
  1. PROGRAF [Concomitant]
  2. PREDNISOLONE [Concomitant]
  3. SEPTRIN [Concomitant]
  4. PROPRANOLOL [Concomitant]
  5. ALLOPURINOL [Concomitant]
  6. GAMMAGARD LIQUID [Suspect]
     Route: 065
     Dates: start: 20100929, end: 20100929
  7. GAMMAGARD LIQUID [Suspect]
     Route: 065
     Dates: start: 20100930, end: 20100930
  8. ASPIRIN [Concomitant]
  9. GAMMAGARD LIQUID [Suspect]
     Indication: ANTIBODY TEST POSITIVE
     Route: 065
     Dates: start: 20100929, end: 20100929
  10. RAMIPRIL [Concomitant]
  11. PRAVASTATIN [Concomitant]
  12. GAMMAGARD LIQUID [Suspect]
     Route: 065
     Dates: start: 20100929, end: 20100929
  13. GAMMAGARD LIQUID [Suspect]
     Route: 065
     Dates: start: 20100930, end: 20100930
  14. GAMMAGARD LIQUID [Suspect]
     Route: 065
     Dates: start: 20100930, end: 20100930
  15. GAMMAGARD LIQUID [Suspect]
     Route: 065
     Dates: start: 20100930, end: 20100930
  16. CELLCEPT [Concomitant]
  17. PANTOPRAZOLE [Concomitant]
  18. GAMMAGARD LIQUID [Suspect]
     Route: 065
     Dates: start: 20100929, end: 20100929
  19. BUMETANIDE [Concomitant]

REACTIONS (4)
  - HEADACHE [None]
  - VOMITING [None]
  - NAUSEA [None]
  - PHOTOPHOBIA [None]
